FAERS Safety Report 6943854-7 (Version None)
Quarter: 2010Q3

REPORT INFORMATION
  Report Type: 
  Country: None (occurrence: None)
  Receive Date: 20100826
  Receipt Date: 20100818
  Transmission Date: 20110219
  Serious: Yes (Hospitalization)
  Sender: FDA-Public Use
  Company Number: A0876509A

PATIENT
  Age: 83 Year
  Sex: Female

DRUGS (5)
  1. VALTREX [Suspect]
     Dosage: 500MG TWICE PER DAY
     Route: 048
     Dates: start: 20100813, end: 20100817
  2. NEXIUM [Concomitant]
  3. SINGULAIR [Concomitant]
  4. HEART MEDICATION [Concomitant]
  5. OTHER MEDICATIONS [Concomitant]

REACTIONS (7)
  - AGITATION [None]
  - CRYING [None]
  - HALLUCINATION [None]
  - INCOHERENT [None]
  - MEMORY IMPAIRMENT [None]
  - RESTLESSNESS [None]
  - SCREAMING [None]
